FAERS Safety Report 17189815 (Version 10)
Quarter: 2021Q2

REPORT INFORMATION
  Report Type: Other
  Country: DE (occurrence: DE)
  Receive Date: 20191223
  Receipt Date: 20210521
  Transmission Date: 20210716
  Serious: Yes (Other)
  Sender: FDA-Public Use
  Company Number: DE-ROCHE-2150768

PATIENT
  Age: 39 Year
  Sex: Female
  Weight: 62.5 kg

DRUGS (12)
  1. TAVEGIL [Suspect]
     Active Substance: CLEMASTINE FUMARATE
     Indication: PREMEDICATION
     Route: 042
  2. AMOXICILLIN. [Concomitant]
     Active Substance: AMOXICILLIN
     Route: 048
     Dates: start: 20191015
  3. SINUPRET EXTRACT [Concomitant]
     Active Substance: DIETARY SUPPLEMENT\HERBALS
  4. OCREVUS [Suspect]
     Active Substance: OCRELIZUMAB
     Dosage: MAINTENANCE DOSE
     Route: 042
     Dates: start: 20181211
  5. NOVAMINSULFON [Concomitant]
     Active Substance: METAMIZOLE
     Route: 042
  6. OCREVUS [Suspect]
     Active Substance: OCRELIZUMAB
     Indication: RELAPSING-REMITTING MULTIPLE SCLEROSIS
     Dosage: SUBSEQUENT DOSE ON 19/JUN/2018
     Route: 042
     Dates: start: 20180605, end: 20180605
  7. PANTOPRAZOL [Concomitant]
     Active Substance: PANTOPRAZOLE SODIUM
     Indication: PREMEDICATION
     Route: 065
  8. LAMUNA [Concomitant]
     Active Substance: DESOGESTREL\ETHINYL ESTRADIOL
     Indication: CONTRACEPTION
     Route: 048
     Dates: start: 1993
  9. OCREVUS [Suspect]
     Active Substance: OCRELIZUMAB
     Route: 042
     Dates: start: 20191217
  10. RANITIC [Concomitant]
     Active Substance: RANITIDINE HYDROCHLORIDE
     Indication: PREMEDICATION
     Route: 042
  11. DECORTIN H [Concomitant]
     Active Substance: PREDNISOLONE
     Indication: PREMEDICATION
     Route: 042
  12. AMOXICILLIN. [Concomitant]
     Active Substance: AMOXICILLIN
     Route: 048
     Dates: start: 20191201, end: 20191204

REACTIONS (13)
  - Hepatic enzyme increased [Recovered/Resolved]
  - Vitamin D deficiency [Recovered/Resolved]
  - Pulpitis dental [Unknown]
  - Toothache [Recovered/Resolved]
  - Tooth injury [Not Recovered/Not Resolved]
  - Teeth brittle [Recovered/Resolved]
  - Fatigue [Recovered/Resolved]
  - Hepatic cyst [Not Recovered/Not Resolved]
  - Headache [Recovered/Resolved]
  - Heart rate increased [Recovered/Resolved]
  - Blood iron decreased [Recovered/Resolved]
  - Chronic sinusitis [Not Recovered/Not Resolved]
  - Eyelid ptosis [Recovered/Resolved]

NARRATIVE: CASE EVENT DATE: 20180605
